FAERS Safety Report 7816275-2 (Version None)
Quarter: 2011Q4

REPORT INFORMATION
  Report Type: 
  Country: None (occurrence: None)
  Receive Date: 20111016
  Receipt Date: 20111012
  Transmission Date: 20120403
  Serious: Yes (Other)
  Sender: FDA-Public Use
  Company Number: US-BRISTOL-MYERS SQUIBB COMPANY-16158388

PATIENT
  Age: 65 Year
  Sex: Male
  Weight: 74 kg

DRUGS (6)
  1. MEGACE [Concomitant]
     Indication: INCREASED APPETITE
  2. COMPAZINE [Concomitant]
  3. ETOPOSIDE [Suspect]
     Indication: LUNG NEOPLASM MALIGNANT
     Dates: start: 20110919, end: 20110920
  4. ASPIRIN [Concomitant]
     Indication: AORTIC ANEURYSM
  5. CARDIZEM [Concomitant]
     Indication: HYPERTENSION
  6. TYLENOL-500 [Concomitant]
     Indication: ANEURYSM

REACTIONS (1)
  - INCORRECT DOSE ADMINISTERED [None]
